FAERS Safety Report 4720774-X (Version None)
Quarter: 2005Q3

REPORT INFORMATION
  Report Type: 
  Country: None (occurrence: None)
  Receive Date: 20050721
  Receipt Date: 20050714
  Transmission Date: 20060218
  Serious: Yes (Hospitalization)
  Sender: FDA-Public Use
  Company Number: JP-BRISTOL-MYERS SQUIBB COMPANY-13038781

PATIENT
  Age: 77 Year
  Sex: Male

DRUGS (7)
  1. PARAPLATIN [Suspect]
     Indication: LUNG ADENOCARCINOMA
     Route: 041
     Dates: start: 20040519, end: 20040818
  2. GEMZAR [Suspect]
     Indication: LUNG NEOPLASM MALIGNANT
     Route: 041
     Dates: start: 20040519, end: 20040906
  3. ALOSITOL [Suspect]
     Indication: BLOOD URIC ACID INCREASED
     Route: 048
     Dates: end: 20041105
  4. ENALAPRIL MALEATE [Suspect]
     Indication: HYPERTENSION
     Route: 048
     Dates: start: 20040628
  5. MAGNESIUM OXIDE [Concomitant]
     Route: 048
     Dates: start: 20040520
  6. AZUCURENIN S [Concomitant]
     Route: 048
  7. ASPIRIN [Concomitant]
     Route: 048

REACTIONS (1)
  - PULMONARY ALVEOLAR HAEMORRHAGE [None]
